FAERS Safety Report 9458368 (Version 2)
Quarter: 2013Q4

REPORT INFORMATION
  Report Type: Spontaneous
  Country: IT (occurrence: IT)
  Receive Date: 20130814
  Receipt Date: 20131001
  Transmission Date: 20140711
  Serious: Yes (Hospitalization)
  Sender: FDA-Public Use
  Company Number: IT-PFIZER INC-2013232396

PATIENT
  Age: 72 Year
  Sex: Female

DRUGS (9)
  1. ECALTA [Suspect]
     Indication: FUNGAL INFECTION
     Dosage: 100 MG, DAILY
     Route: 042
     Dates: start: 20130729, end: 20130729
  2. LEVOTHYROXINE [Concomitant]
     Dosage: 75 MG, UNK
  3. BISOPROLOL FUMARATE [Concomitant]
     Dosage: 5 MG, UNK
  4. HYDROCHLOROTHIAZIDE, TELMISARTAN [Concomitant]
     Dosage: 5.5 MG, UNK
  5. ACETYLSALICYLIC ACID [Concomitant]
     Dosage: 100 MG, UNK
  6. DOXAZOSIN [Concomitant]
     Dosage: 2 MG, UNK
  7. ROSUVASTATIN CALCIUM [Concomitant]
     Dosage: 10 MG, UNK
  8. AMLODIPINE [Concomitant]
     Dosage: 10 MG, UNK
  9. IMIPENEM/CILASTINA HOSPIRA [Concomitant]
     Dosage: 500 MG, UNK
     Route: 042
     Dates: start: 20130729, end: 20130729

REACTIONS (5)
  - Dyspnoea [Recovered/Resolved]
  - Eyelid oedema [Recovered/Resolved]
  - Livedo reticularis [Recovered/Resolved]
  - Pruritus [Recovered/Resolved]
  - Syncope [Recovered/Resolved]
